FAERS Safety Report 6687483-1 (Version None)
Quarter: 2010Q2

REPORT INFORMATION
  Report Type: 
  Country: None (occurrence: None)
  Receive Date: 20100416
  Receipt Date: 20100416
  Transmission Date: 20101027
  Serious: Yes (Other)
  Sender: FDA-Public Use
  Company Number: None

PATIENT
  Sex: Female
  Weight: 71.6683 kg

DRUGS (1)
  1. REBIF [Suspect]
     Indication: MULTIPLE SCLEROSIS
     Dosage: 44 MCG INJECTION 3 / WK SUBCUTANEOUS
     Route: 058
     Dates: start: 20020301, end: 20100401

REACTIONS (2)
  - ANXIETY [None]
  - PHOBIA [None]
